FAERS Safety Report 11942421 (Version 1)
Quarter: 2016Q1

REPORT INFORMATION
  Report Type: Report from Study
  Country: MX (occurrence: MX)
  Receive Date: 20160125
  Receipt Date: 20160125
  Transmission Date: 20160526
  Serious: Yes (Death)
  Sender: FDA-Public Use
  Company Number: MX-ROCHE-1667744

PATIENT
  Age: 95 Year
  Sex: Female
  Weight: 63 kg

DRUGS (1)
  1. BONVIVA [Suspect]
     Active Substance: IBANDRONATE SODIUM
     Indication: OSTEOPOROSIS
     Route: 048
     Dates: start: 2006, end: 20151020

REACTIONS (6)
  - Malaise [Recovered/Resolved]
  - Constipation [Recovered/Resolved]
  - Pneumonia [Fatal]
  - Hepatic failure [Fatal]
  - Renal failure [Fatal]
  - Nausea [Recovered/Resolved]

NARRATIVE: CASE EVENT DATE: 20150220
